FAERS Safety Report 7359752-3 (Version None)
Quarter: 2011Q1

REPORT INFORMATION
  Report Type: 
  Country: None (occurrence: None)
  Receive Date: 20110307
  Receipt Date: 20110218
  Transmission Date: 20110831
  Serious: Yes (Other)
  Sender: FDA-Public Use
  Company Number: AUR-APL-2011-00653

PATIENT
  Age: 58 Year
  Sex: Male

DRUGS (3)
  1. TAMSULOSIN HCL [Concomitant]
  2. SIMVASTATIN [Suspect]
     Dosage: 10MG
  3. UNSPECIFIED DIURETICS [Concomitant]

REACTIONS (1)
  - MUSCLE RUPTURE [None]
